FAERS Safety Report 7809482-6 (Version None)
Quarter: 2011Q4

REPORT INFORMATION
  Report Type: 
  Country: None (occurrence: None)
  Receive Date: 20111012
  Receipt Date: 20110928
  Transmission Date: 20120403
  Serious: Yes (Hospitalization, Other)
  Sender: FDA-Public Use
  Company Number: PHHY2011BR88490

PATIENT
  Age: 72 Year
  Sex: Female

DRUGS (5)
  1. DIOVAN [Suspect]
     Dosage: 80 MG, PER DAY
  2. ASPIRIN [Suspect]
     Dosage: 100 MG, UNK
  3. LESCOL [Concomitant]
     Dosage: 80 MG, PER DAY
  4. DIABINESE [Concomitant]
     Dosage: 125 MG, PER DAY
  5. ALLOPURINOL [Concomitant]
     Dosage: UNK UKN, UNK

REACTIONS (4)
  - BLOOD CREATININE INCREASED [None]
  - HYPERURICAEMIA [None]
  - HYPERTENSION [None]
  - BLOOD POTASSIUM DECREASED [None]
